FAERS Safety Report 8587695-6 (Version None)
Quarter: 2012Q3

REPORT INFORMATION
  Report Type: 
  Country: None (occurrence: None)
  Receive Date: 20120813
  Receipt Date: 20120731
  Transmission Date: 20120928
  Serious: Yes (Other)
  Sender: FDA-Public Use
  Company Number: BR-BRISTOL-MYERS SQUIBB COMPANY-16747735

PATIENT
  Age: 71 Year
  Sex: Female

DRUGS (1)
  1. ORENCIA [Suspect]
     Indication: RHEUMATOID ARTHRITIS
     Dosage: ON 08NOV,08DEC2010 +IN MONTHS OF JAN,FEB AND MARCH2011.
     Route: 042
     Dates: start: 20101025

REACTIONS (1)
  - LUPUS NEPHRITIS [None]
